FAERS Safety Report 7000364-9 (Version None)
Quarter: 2010Q3

REPORT INFORMATION
  Report Type: 
  Country: None (occurrence: None)
  Receive Date: 20100920
  Receipt Date: 20100527
  Transmission Date: 20110219
  Serious: Yes (Other)
  Sender: FDA-Public Use
  Company Number: US-ASTRAZENECA-2006UW09862

PATIENT
  Age: 30 Year
  Sex: Male
  Weight: 79.4 kg

DRUGS (13)
  1. SEROQUEL [Suspect]
     Indication: SCHIZOPHRENIA, PARANOID TYPE
     Dosage: 200MG-600MG
     Route: 048
     Dates: start: 20010710
  2. SEROQUEL [Suspect]
     Route: 048
     Dates: start: 20030127, end: 20040518
  3. SEROQUEL [Suspect]
     Route: 048
     Dates: start: 20040624, end: 20040713
  4. SEROQUEL [Suspect]
     Route: 048
     Dates: start: 20040713
  5. ABILIFY [Concomitant]
     Route: 048
     Dates: start: 20050101
  6. HALDOL [Concomitant]
     Dates: start: 19960101
  7. RISPERDAL [Concomitant]
     Dosage: 2, 4 MG
     Dates: start: 19990101, end: 20010101
  8. SIMVASTATIN [Concomitant]
     Dates: start: 20070616
  9. ZETIA [Concomitant]
     Dates: start: 20070302
  10. DEPAKOTE [Concomitant]
     Dosage: STRENGTH 500MG AND 1500MG, DOSE 1500MG DAILY
     Route: 048
     Dates: start: 20050101
  11. LIPITOR [Concomitant]
     Dates: start: 20050101
  12. AVANDIA [Concomitant]
     Dosage: 4-8 MG DAILY
     Dates: start: 20060206
  13. GLUCOPHAGE [Concomitant]
     Dosage: 1000-2000 MG
     Dates: start: 20050101

REACTIONS (3)
  - BLOOD CHOLESTEROL INCREASED [None]
  - DIABETES MELLITUS [None]
  - DIABETIC KETOACIDOSIS [None]
